FAERS Safety Report 4371461-1 (Version None)
Quarter: 2004Q2

REPORT INFORMATION
  Report Type: 
  Country: None (occurrence: None)
  Receive Date: 20040601
  Receipt Date: 20040521
  Transmission Date: 20050107
  Serious: No
  Sender: FDA-Public Use
  Company Number: 04H-163-0261673-00

PATIENT
  Sex: 0

DRUGS (1)
  1. MEPIVACAINE HCL [Suspect]
     Indication: ANAESTHESIA

REACTIONS (10)
  - ANAESTHETIC COMPLICATION [None]
  - APGAR SCORE LOW [None]
  - DRUG LEVEL INCREASED [None]
  - FOETAL ACIDOSIS [None]
  - HYPOKINESIA NEONATAL [None]
  - MATERNAL DRUGS AFFECTING FOETUS [None]
  - MECONIUM IN AMNIOTIC FLUID [None]
  - NEONATAL ASPHYXIA [None]
  - NEONATAL RESPIRATORY DEPRESSION [None]
  - TACHYCARDIA FOETAL [None]
